FAERS Safety Report 25658273 (Version 1)
Quarter: 2025Q3

REPORT INFORMATION
  Report Type: Spontaneous
  Country: US (occurrence: US)
  Receive Date: 20250808
  Receipt Date: 20250808
  Transmission Date: 20251020
  Serious: Yes (Hospitalization)
  Sender: ALEXION PHARMACEUTICALS
  Company Number: US-AstraZeneca-CH-00926115A

PATIENT
  Sex: Male

DRUGS (1)
  1. STRENSIQ [Suspect]
     Active Substance: ASFOTASE ALFA
     Indication: Hypophosphatasia
     Route: 065
     Dates: start: 20250802

REACTIONS (2)
  - Dizziness [Recovered/Resolved]
  - Syncope [Recovered/Resolved]
